FAERS Safety Report 5217020-X (Version None)
Quarter: 2007Q1

REPORT INFORMATION
  Report Type: 
  Country: None (occurrence: None)
  Receive Date: 20070119
  Receipt Date: 20070110
  Transmission Date: 20070707
  Serious: Yes (Other)
  Sender: FDA-Public Use
  Company Number: 2007-00118

PATIENT
  Age: 20 Year
  Sex: Male

DRUGS (4)
  1. FLUOROURACIL [Suspect]
     Indication: COLON CANCER METASTATIC
     Dosage: 3 CYCLES, UNK
  2. CAMPTOSAR [Suspect]
     Indication: COLON CANCER METASTATIC
     Dosage: 3 CYCLES, UNK
  3. LEUCOVORIN CALCIUM [Suspect]
     Indication: COLON CANCER METASTATIC
     Dosage: 3 CYCLES, UNK
  4. BEVACIZUMAB(BEVACIZUMAB) [Suspect]
     Indication: COLON CANCER METASTATIC
     Dosage: 2 CYCLES, UNK

REACTIONS (1)
  - PERITONITIS BACTERIAL [None]
